FAERS Safety Report 7226517-2 (Version None)
Quarter: 2011Q1

REPORT INFORMATION
  Report Type: 
  Country: None (occurrence: None)
  Receive Date: 20110114
  Receipt Date: 20110105
  Transmission Date: 20110831
  Serious: Yes (Other)
  Sender: FDA-Public Use
  Company Number: DE-JNJFOC-20101207796

PATIENT
  Sex: Female
  Weight: 85 kg

DRUGS (5)
  1. VENOFER [Concomitant]
     Route: 042
  2. VENOFER [Concomitant]
     Route: 042
  3. VENOFER [Concomitant]
     Indication: IRON DEFICIENCY ANAEMIA
     Route: 042
  4. REMICADE [Suspect]
     Indication: POLYARTHRITIS
     Route: 042
  5. REMICADE [Suspect]
     Route: 042

REACTIONS (1)
  - DRUG EXPOSURE DURING PREGNANCY [None]
